FAERS Safety Report 8552088 (Version 5)
Quarter: 2013Q1

REPORT INFORMATION
  Report Type: Report from Study
  Country: AU (occurrence: AU)
  Receive Date: 20120508
  Receipt Date: 20130301
  Transmission Date: 20140127
  Serious: Yes (Hospitalization, Other)
  Sender: FDA-Public Use
  Company Number: AU-ROCHE-1066455

PATIENT
  Age: 43 Year
  Sex: Female
  Weight: 60.6 kg

DRUGS (3)
  1. ALISPORIVIR [Suspect]
     Indication: HEPATITIS C
     Route: 065
     Dates: start: 20111011, end: 20120131
  2. PEG-INTERFERON ALFA 2A [Suspect]
     Indication: HEPATITIS C
     Route: 058
     Dates: start: 20111011, end: 20120131
  3. RIBAVIRIN [Suspect]
     Indication: HEPATITIS C
     Route: 048
     Dates: start: 20111011, end: 20120131

REACTIONS (1)
  - Spontaneous haematoma [Recovered/Resolved]
